FAERS Safety Report 4999019-1 (Version None)
Quarter: 2006Q2

REPORT INFORMATION
  Report Type: 
  Country: None (occurrence: None)
  Receive Date: 20060509
  Receipt Date: 20060420
  Transmission Date: 20061013
  Serious: Yes (Hospitalization)
  Sender: FDA-Public Use
  Company Number: US200604003387

PATIENT
  Sex: Male

DRUGS (1)
  1. INSULIN, ANIMAL(INSULIN, ANIMAL)VIAL [Suspect]
     Indication: DIABETES MELLITUS

REACTIONS (2)
  - PAIN [None]
  - SELF-MEDICATION [None]
